FAERS Safety Report 8575806-8 (Version None)
Quarter: 2012Q3

REPORT INFORMATION
  Report Type: 
  Country: None (occurrence: None)
  Receive Date: 20120807
  Receipt Date: 20120731
  Transmission Date: 20120928
  Serious: Yes (Other)
  Sender: FDA-Public Use
  Company Number: US-BAYER-2012-079345

PATIENT
  Age: 25 Year
  Sex: Female

DRUGS (1)
  1. MIRENA [Suspect]
     Dosage: 20 MCG/24HR, CONT
     Route: 015
     Dates: start: 20080812, end: 20110726

REACTIONS (7)
  - PELVIC PAIN [None]
  - DEVICE DISLOCATION [None]
  - EMOTIONAL DISORDER [None]
  - PAIN [None]
  - MENSTRUATION IRREGULAR [None]
  - ABDOMINAL PAIN [None]
  - INJURY [None]
